FAERS Safety Report 6897855-8 (Version None)
Quarter: 2010Q3

REPORT INFORMATION
  Report Type: 
  Country: None (occurrence: None)
  Receive Date: 20100802
  Receipt Date: 20070725
  Transmission Date: 20110219
  Serious: Yes (Other)
  Sender: FDA-Public Use
  Company Number: US-PFIZER INC-2007061749

PATIENT
  Sex: Female

DRUGS (9)
  1. LYRICA [Suspect]
     Indication: NERVE INJURY
     Dates: start: 20070607, end: 20070701
  2. NORVASC [Concomitant]
  3. AMARYL [Concomitant]
  4. METOPROLOL [Concomitant]
  5. BENAZEPRIL HYDROCHLORIDE [Concomitant]
  6. ALLEGRA [Concomitant]
  7. ZOCOR [Concomitant]
  8. LUMIGAN [Concomitant]
     Indication: GLAUCOMA
  9. HYDROCHLOROTHIAZIDE [Concomitant]

REACTIONS (3)
  - MUSCULAR WEAKNESS [None]
  - OEDEMA PERIPHERAL [None]
  - SOMNOLENCE [None]
